FAERS Safety Report 7346917-X (Version None)
Quarter: 2011Q1

REPORT INFORMATION
  Report Type: 
  Country: None (occurrence: None)
  Receive Date: 20110302
  Receipt Date: 20110119
  Transmission Date: 20110831
  Serious: No
  Sender: FDA-Public Use
  Company Number: 2011-00023

PATIENT
  Age: 83 Year
  Sex: Female
  Weight: 58.9676 kg

DRUGS (8)
  1. PROPANOLOL ER [Concomitant]
  2. ZICAM COLD REMEDY RAPIDMELTS WITH VITAMIN C [Suspect]
     Dosage: Q3 HOURS X 3 DAYS
     Dates: start: 20110112, end: 20110114
  3. J TABS [Concomitant]
  4. PREMARIN [Concomitant]
  5. ZICAM COLD REMEDY ORAL MIST [Suspect]
     Dosage: Q3 HOURS X 3 DAYS
     Dates: start: 20110114, end: 20110116
  6. TORSEMIDE [Concomitant]
  7. ALLOPURINOL [Concomitant]
  8. ASPIRIN [Concomitant]

REACTIONS (1)
  - AGEUSIA [None]
